FAERS Safety Report 8060075-8 (Version None)
Quarter: 2012Q1

REPORT INFORMATION
  Report Type: 
  Country: None (occurrence: None)
  Receive Date: 20120120
  Receipt Date: 20120111
  Transmission Date: 20120608
  Serious: Yes (Hospitalization, Disabling, Other)
  Sender: FDA-Public Use
  Company Number: US-MERCK-1108USA01227

PATIENT
  Age: 63 Year
  Sex: Female
  Weight: 55 kg

DRUGS (4)
  1. FOSAMAX [Suspect]
     Route: 048
     Dates: start: 19980518
  2. HORMONES (UNSPECIFIED) [Concomitant]
     Route: 065
     Dates: start: 19970101
  3. FOSAMAX [Suspect]
     Route: 048
     Dates: start: 20060101
  4. FOSAMAX [Suspect]
     Indication: OSTEOPOROSIS
     Route: 048
     Dates: start: 20080101, end: 20090601

REACTIONS (38)
  - FALL [None]
  - SPINAL DISORDER [None]
  - NECK MASS [None]
  - VENOUS INSUFFICIENCY [None]
  - PNEUMONIA [None]
  - INTERVERTEBRAL DISC DEGENERATION [None]
  - FRACTURE DELAYED UNION [None]
  - ARTHRITIS [None]
  - DIZZINESS [None]
  - DRUG HYPERSENSITIVITY [None]
  - ARTHRALGIA [None]
  - HYPERCHOLESTEROLAEMIA [None]
  - SPONDYLOLISTHESIS [None]
  - PAIN IN EXTREMITY [None]
  - HYPONATRAEMIA [None]
  - RHINITIS SEASONAL [None]
  - IRRITABLE BOWEL SYNDROME [None]
  - FEMUR FRACTURE [None]
  - ADENOIDAL DISORDER [None]
  - OEDEMA PERIPHERAL [None]
  - HYPERTENSION [None]
  - OESOPHAGEAL STENOSIS [None]
  - HYPERLIPIDAEMIA [None]
  - CHEST X-RAY ABNORMAL [None]
  - GASTROINTESTINAL DISORDER [None]
  - HYPERSENSITIVITY [None]
  - FRACTURE NONUNION [None]
  - ADVERSE DRUG REACTION [None]
  - DEVICE MALFUNCTION [None]
  - ANAEMIA [None]
  - TONSILLAR DISORDER [None]
  - PELVIC FRACTURE [None]
  - ARTHROPATHY [None]
  - GASTROOESOPHAGEAL REFLUX DISEASE [None]
  - PAIN [None]
  - FIBROCYSTIC BREAST DISEASE [None]
  - LUMBAR RADICULOPATHY [None]
  - HAEMATURIA [None]
